FAERS Safety Report 5346921-7 (Version None)
Quarter: 2007Q2

REPORT INFORMATION
  Report Type: 
  Country: None (occurrence: None)
  Receive Date: 20070430
  Receipt Date: 20070105
  Transmission Date: 20071010
  Serious: No
  Sender: FDA-Public Use
  Company Number: 259801

PATIENT
  Age: 78 Year
  Sex: Male
  Weight: 86.2 kg

DRUGS (2)
  1. LEVEMIR [Suspect]
     Indication: DIABETES MELLITUS INSULIN-DEPENDENT
     Dosage: 31 IU, QD (15 IU IN AM+16 IU PM), SUBCUTANEOUS
     Route: 058
     Dates: start: 20060101
  2. HUMALOG [Concomitant]

REACTIONS (1)
  - BLOOD GLUCOSE INCREASED [None]
